FAERS Safety Report 21163768 (Version 1)
Quarter: 2022Q3

REPORT INFORMATION
  Report Type: Spontaneous
  Country: US (occurrence: US)
  Receive Date: 20220803
  Receipt Date: 20220803
  Transmission Date: 20221027
  Serious: Yes (Other)
  Sender: FDA-Public Use
  Company Number: US-SUN PHARMACEUTICAL INDUSTRIES LTD-2022R1-347067

PATIENT
  Age: 35 Year
  Sex: Female

DRUGS (2)
  1. IMATINIB [Suspect]
     Active Substance: IMATINIB
     Indication: Chronic myeloid leukaemia
     Dosage: 400 MILLIGRAM, DAILY
     Route: 065
     Dates: start: 200512
  2. IMATINIB [Suspect]
     Active Substance: IMATINIB
     Dosage: 600 MILLIGRAM, DAILY
     Route: 065
     Dates: start: 200606

REACTIONS (3)
  - Drug ineffective [Unknown]
  - Exposure during pregnancy [Unknown]
  - Live birth [Unknown]

NARRATIVE: CASE EVENT DATE: 20060601
